FAERS Safety Report 7135786-9 (Version None)
Quarter: 2010Q4

REPORT INFORMATION
  Report Type: 
  Country: None (occurrence: None)
  Receive Date: 20101203
  Receipt Date: 20101202
  Transmission Date: 20110411
  Serious: Yes (Hospitalization, Other)
  Sender: FDA-Public Use
  Company Number: US-ABBOTT-10P-163-0687567-00

PATIENT
  Sex: Male
  Weight: 80.812 kg

DRUGS (4)
  1. NIASPAN [Suspect]
     Indication: BLOOD CHOLESTEROL INCREASED
  2. NIASPAN [Suspect]
  3. ACTIVA [Concomitant]
     Indication: GASTROINTESTINAL DISORDER
  4. METAMUCIL TYPE MEDICATION [Concomitant]
     Indication: ABNORMAL FAECES

REACTIONS (6)
  - DIVERTICULUM INTESTINAL HAEMORRHAGIC [None]
  - FLUSHING [None]
  - MEDICATION RESIDUE [None]
  - POSTOPERATIVE WOUND INFECTION [None]
  - PRURITUS [None]
  - RASH [None]
